FAERS Safety Report 6389697-7 (Version None)
Quarter: 2009Q4

REPORT INFORMATION
  Report Type: 
  Country: None (occurrence: None)
  Receive Date: 20091002
  Receipt Date: 20091002
  Transmission Date: 20100525
  Serious: No
  Sender: FDA-Public Use
  Company Number: None

PATIENT
  Age: 65 Year
  Sex: Female
  Weight: 95.2554 kg

DRUGS (2)
  1. VYTORIN [Suspect]
     Indication: BLOOD CHOLESTEROL
     Dosage: 1 TABLET PER NIGHT 1 PER NIGHT PO
     Route: 048
     Dates: start: 20080601, end: 20090925
  2. VYTORIN [Suspect]
     Indication: CARDIOVASCULAR EVENT PROPHYLAXIS
     Dosage: 1 TABLET PER NIGHT 1 PER NIGHT PO
     Route: 048
     Dates: start: 20080601, end: 20090925

REACTIONS (2)
  - FIBROMYALGIA [None]
  - MYALGIA [None]
